FAERS Safety Report 18742126 (Version 9)
Quarter: 2022Q1

REPORT INFORMATION
  Report Type: Spontaneous
  Country: CZ (occurrence: CZ)
  Receive Date: 20210114
  Receipt Date: 20220110
  Transmission Date: 20220423
  Serious: Yes (Other)
  Sender: FDA-Public Use
  Company Number: CZ-MYLANLABS-2020M1101214

PATIENT
  Age: 53 Year
  Sex: Female

DRUGS (9)
  1. METOPROLOL [Suspect]
     Active Substance: METOPROLOL
     Indication: Migraine
     Dosage: 200 MILLIGRAM, QD (200 MILLIGRAM, QD)
     Route: 048
     Dates: start: 201101, end: 201208
  2. METOPROLOL [Suspect]
     Active Substance: METOPROLOL
     Dosage: 50 MILLIGRAM, QD
     Route: 048
     Dates: start: 201212
  3. METOPROLOL [Suspect]
     Active Substance: METOPROLOL
     Dosage: 200 MILLIGRAM, QD
     Route: 048
     Dates: start: 201101, end: 2012
  4. METOPROLOL [Suspect]
     Active Substance: METOPROLOL
     Dosage: TITRATED TO A DOSE OF 200 MG
     Dates: start: 201101, end: 2011
  5. METOPROLOL [Suspect]
     Active Substance: METOPROLOL
     Dosage: 50 MILLIGRAM
  6. METOPROLOL [Suspect]
     Active Substance: METOPROLOL
     Dosage: UNK
  7. VENLAFAXINE [Suspect]
     Active Substance: VENLAFAXINE HYDROCHLORIDE
     Indication: Migraine
     Dosage: UNK (UP TO DOSE A DOSE OF 75 MG DAILY), START AUG-2012
  8. VENLAFAXINE [Suspect]
     Active Substance: VENLAFAXINE HYDROCHLORIDE
     Indication: Prophylaxis
     Dosage: UNK
     Route: 048
  9. ACETAMINOPHEN\CAFFEINE\GUAIFENESIN [Concomitant]
     Active Substance: ACETAMINOPHEN\CAFFEINE\GUAIFENESIN
     Dosage: UNK

REACTIONS (5)
  - Blood pressure increased [Unknown]
  - Cardiovascular disorder [Recovered/Resolved]
  - Palpitations [Unknown]
  - Depression [Unknown]
  - Drug ineffective [Recovering/Resolving]

NARRATIVE: CASE EVENT DATE: 20111201
